FAERS Safety Report 6635894-2 (Version None)
Quarter: 2010Q1

REPORT INFORMATION
  Report Type: 
  Country: None (occurrence: None)
  Receive Date: 20100316
  Receipt Date: 20100312
  Transmission Date: 20100710
  Serious: Yes (Death)
  Sender: FDA-Public Use
  Company Number: PHEH2010US03059

PATIENT
  Sex: Female
  Weight: 47.166 kg

DRUGS (1)
  1. EXJADE [Suspect]
     Indication: LYMPHATIC DISORDER
     Dosage: 125 MG, QD
     Route: 048
     Dates: start: 20091028

REACTIONS (1)
  - DEATH [None]
